FAERS Safety Report 4881730-4 (Version None)
Quarter: 2006Q1

REPORT INFORMATION
  Report Type: 
  Country: None (occurrence: None)
  Receive Date: 20060116
  Receipt Date: 20060104
  Transmission Date: 20060701
  Serious: Yes (Hospitalization)
  Sender: FDA-Public Use
  Company Number: US-ROCHE-430564

PATIENT
  Age: 47 Year
  Sex: Female
  Weight: 109.8 kg

DRUGS (2)
  1. PEG-INTERFERON ALFA 2A (RO 25-8310) [Suspect]
     Route: 058
     Dates: start: 20051027
  2. RIBAVIRIN [Suspect]
     Route: 048
     Dates: start: 20051027, end: 20051205

REACTIONS (3)
  - APPENDICITIS PERFORATED [None]
  - GASTROENTERITIS VIRAL [None]
  - URINARY TRACT INFECTION [None]
